FAERS Safety Report 19389386 (Version 1)
Quarter: 2021Q2

REPORT INFORMATION
  Report Type: Spontaneous
  Country: US (occurrence: US)
  Receive Date: 20210607
  Receipt Date: 20210607
  Transmission Date: 20210717
  Serious: Yes (Other)
  Sender: FDA-Public Use
  Company Number: None

PATIENT
  Sex: Female
  Weight: 63 kg

DRUGS (1)
  1. DESICCATED THYROID PORCINE [Suspect]
     Active Substance: THYROID, PORCINE

REACTIONS (3)
  - Drug ineffective [None]
  - Insomnia [None]
  - Anxiety [None]
